FAERS Safety Report 9944272 (Version 1)
Quarter: 2014Q1

REPORT INFORMATION
  Report Type: Report from Study
  Country: US (occurrence: US)
  Receive Date: 20140303
  Receipt Date: 20140303
  Transmission Date: 20141002
  Serious: No
  Sender: FDA-Public Use
  Company Number: US-ABBVIE-13P-163-1052698-00

PATIENT
  Age: 64 Year
  Sex: Male

DRUGS (27)
  1. HUMIRA [Suspect]
     Indication: PSORIATIC ARTHROPATHY
     Dosage: INITIAL DOSE
     Route: 058
     Dates: start: 20130128, end: 20130128
  2. TUNA OMEGA 3 OIL [Concomitant]
     Indication: PRODUCT USED FOR UNKNOWN INDICATION
  3. PRAMIPEXOLE [Concomitant]
     Indication: RESTLESS LEGS SYNDROME
  4. PRAMIPEXOLE [Concomitant]
     Indication: PARKINSON^S DISEASE
  5. GLIPIZIDE XL [Concomitant]
     Indication: DIABETES MELLITUS
  6. NORTRIPTYLINE HCL [Concomitant]
     Indication: DEPRESSION
     Dosage: AT HOUR OF SLEEP
  7. OMEPRAZOLE [Concomitant]
     Indication: GASTROOESOPHAGEAL REFLUX DISEASE
  8. BUPROPION HCL [Concomitant]
     Indication: BIPOLAR DISORDER
  9. METFORMIN HCL [Concomitant]
     Indication: DIABETES MELLITUS
  10. GLIPIZIDE XL [Concomitant]
     Indication: DIABETES MELLITUS
  11. LITHIUM CARBONATE [Concomitant]
     Indication: BIPOLAR DISORDER
     Dosage: 2 TABS IN AM AND 1 TAB IN PM
  12. TOPIRAMATE [Concomitant]
     Indication: MIGRAINE
  13. LORAZEPAM [Concomitant]
     Indication: ANXIETY
  14. LORAZEPAM [Concomitant]
     Indication: RESTLESS LEGS SYNDROME
  15. VESICARE [Concomitant]
     Indication: BLADDER SPASM
  16. HYDROCODONE [Concomitant]
     Indication: PAIN
     Dosage: 5/500MG, AS NEEDED
  17. AVAPRO [Concomitant]
     Indication: BLOOD PRESSURE
  18. LASIX [Concomitant]
     Indication: OEDEMA
  19. SIMVASTATIN [Concomitant]
     Indication: BLOOD CHOLESTEROL
  20. FOLIC ACID W/VITAMIN B12 [Concomitant]
     Indication: PRODUCT USED FOR UNKNOWN INDICATION
     Dosage: 400MCG/6MCG DAILY
  21. CELLULAR VITALITY [Concomitant]
     Indication: PRODUCT USED FOR UNKNOWN INDICATION
  22. ALPHA LIPOIC ACID [Concomitant]
     Indication: NEUROPATHY PERIPHERAL
  23. PHYTOPLANKTON [Concomitant]
     Indication: PRODUCT USED FOR UNKNOWN INDICATION
  24. PRO AIR HFA [Concomitant]
     Indication: ASTHMA
     Dosage: INHALER
  25. PRO AIR HFA [Concomitant]
     Indication: CHRONIC OBSTRUCTIVE PULMONARY DISEASE
  26. FLUTICASONE PROPIONATE [Concomitant]
     Indication: HYPERSENSITIVITY
     Dosage: EACH NOSTRIL DAILY
  27. SPIRIVA [Concomitant]
     Indication: CHRONIC OBSTRUCTIVE PULMONARY DISEASE

REACTIONS (3)
  - Epistaxis [Not Recovered/Not Resolved]
  - Sinusitis [Not Recovered/Not Resolved]
  - Haemoptysis [Not Recovered/Not Resolved]
